FAERS Safety Report 16023017 (Version 1)
Quarter: 2019Q1

REPORT INFORMATION
  Report Type: Spontaneous
  Country: US (occurrence: US)
  Receive Date: 20190204
  Receipt Date: 20190204
  Transmission Date: 20190418
  Serious: Yes (Other)
  Sender: FDA-Public Use
  Company Number: None

PATIENT
  Age: 56 Year
  Sex: Female

DRUGS (1)
  1. LEFLUNOMIDE TAB 10MG [Suspect]
     Active Substance: LEFLUNOMIDE
     Route: 048
     Dates: start: 201801, end: 201812

REACTIONS (2)
  - Rash [None]
  - Alopecia [None]

NARRATIVE: CASE EVENT DATE: 20190204
